FAERS Safety Report 8581280-8 (Version None)
Quarter: 2012Q3

REPORT INFORMATION
  Report Type: 
  Country: None (occurrence: None)
  Receive Date: 20120809
  Receipt Date: 20120801
  Transmission Date: 20120928
  Serious: Yes (Other)
  Sender: FDA-Public Use
  Company Number: US-BAYER-2012-078804

PATIENT
  Age: 34 Year
  Sex: Female

DRUGS (3)
  1. HYPERCARE [Concomitant]
  2. TRI-LUMA [Concomitant]
     Dosage: APPLY EXTERNALLY ONCE DAILY
     Route: 061
  3. YAZ [Suspect]
     Dosage: UNK
     Dates: start: 20070101, end: 20100101

REACTIONS (1)
  - DEEP VEIN THROMBOSIS [None]
